FAERS Safety Report 10330982 (Version 3)
Quarter: 2015Q1

REPORT INFORMATION
  Report Type: Spontaneous
  Country: DE (occurrence: DE)
  Receive Date: 20140722
  Receipt Date: 20140722
  Transmission Date: 20150720
  Serious: Yes (Other)
  Sender: FDA-Public Use
  Company Number: DE-MYLANLABS-2014S1016285

PATIENT
  Age: 60 Year
  Sex: Male

DRUGS (5)
  1. CIPROFLOXACIN. [Suspect]
     Active Substance: CIPROFLOXACIN
  2. CIPROBETA [Suspect]
     Active Substance: CIPROFLOXACIN HYDROCHLORIDE
  3. DICLOFENAC [Suspect]
     Active Substance: DICLOFENAC
  4. LEVOFLOXACIN. [Suspect]
     Active Substance: LEVOFLOXACIN
  5. PREDNISOLON [Suspect]
     Active Substance: PREDNISOLONE

REACTIONS (11)
  - Disturbance in attention [Not Recovered/Not Resolved]
  - Nightmare [Not Recovered/Not Resolved]
  - Pain [Not Recovered/Not Resolved]
  - Headache [Not Recovered/Not Resolved]
  - Memory impairment [Not Recovered/Not Resolved]
  - Pyrexia [Not Recovered/Not Resolved]
  - Tendon pain [Not Recovered/Not Resolved]
  - Neck pain [Not Recovered/Not Resolved]
  - Back pain [Not Recovered/Not Resolved]
  - Limb discomfort [Not Recovered/Not Resolved]
  - Throat tightness [Not Recovered/Not Resolved]
